FAERS Safety Report 12424237 (Version 1)
Quarter: 2016Q2

REPORT INFORMATION
  Report Type: Spontaneous
  Country: US (occurrence: None)
  Receive Date: 20160531
  Receipt Date: 20160531
  Transmission Date: 20160815
  Serious: No
  Sender: FDA-Public Use
  Company Number: None

PATIENT
  Sex: Female

DRUGS (1)
  1. SUTENT [Suspect]
     Active Substance: SUNITINIB MALATE
     Indication: RENAL CANCER
     Route: 048
     Dates: start: 20160518

REACTIONS (4)
  - Tongue disorder [None]
  - Abdominal discomfort [None]
  - Diarrhoea [None]
  - Tenderness [None]

NARRATIVE: CASE EVENT DATE: 2016
